FAERS Safety Report 8880193 (Version 2)
Quarter: 2013Q2

REPORT INFORMATION
  Report Type: Report from Study
  Country: PH (occurrence: PH)
  Receive Date: 20121101
  Receipt Date: 20130522
  Transmission Date: 20140414
  Serious: Yes (Hospitalization)
  Sender: FDA-Public Use
  Company Number: PHHY2012PH098398

PATIENT
  Age: 30 Year
  Sex: Male

DRUGS (3)
  1. GLIVEC [Suspect]
     Indication: CHRONIC MYELOID LEUKAEMIA
     Dosage: 400 MG/DAY
     Route: 048
     Dates: start: 20100115, end: 20120917
  2. GLIVEC [Suspect]
     Dosage: 600 MG/DAY
     Dates: start: 20120917, end: 20121031
  3. GLIVEC [Suspect]
     Dosage: 800 MG/DAY
     Dates: start: 20121031

REACTIONS (3)
  - Mass [Unknown]
  - Lymphadenopathy [Unknown]
  - White blood cell count increased [Unknown]
